FAERS Safety Report 7297247-6 (Version None)
Quarter: 2011Q1

REPORT INFORMATION
  Report Type: 
  Country: None (occurrence: None)
  Receive Date: 20110216
  Receipt Date: 20110209
  Transmission Date: 20110831
  Serious: Yes (Hospitalization)
  Sender: FDA-Public Use
  Company Number: FR-PURDUE-GBR-2011-0007753

PATIENT
  Sex: Male

DRUGS (9)
  1. RISPERDAL [Suspect]
     Indication: PRODUCT USED FOR UNKNOWN INDICATION
     Dosage: 0.5 MG, DAILY
     Route: 048
     Dates: end: 20100824
  2. LYRICA [Concomitant]
     Dosage: 1 TABLET, BID
     Route: 065
  3. ACETAMINOPHEN [Concomitant]
     Dosage: 1 TABLET, TID
     Route: 065
  4. OXYCODONE HCL EXTENDED-RELEASE [Suspect]
     Indication: PRODUCT USED FOR UNKNOWN INDICATION
     Dosage: 30 MG, BID
     Route: 048
  5. OXYCODONE HCL [Concomitant]
     Dosage: 5 MG, PRN
  6. PLAVIX [Concomitant]
     Dosage: 1 TABLET, DAILY
     Route: 065
  7. MODOPAR [Suspect]
     Indication: PRODUCT USED FOR UNKNOWN INDICATION
     Dosage: 125 MG, BID
     Route: 048
     Dates: end: 20101001
  8. ATHYMIL [Concomitant]
     Dosage: 30 MG, PM
     Route: 065
  9. MOVICOL                            /01625101/ [Concomitant]
     Dosage: 3 UNK, UNK
     Route: 065

REACTIONS (10)
  - RESTLESSNESS [None]
  - VERBAL ABUSE [None]
  - DELUSION [None]
  - SELF-INJURIOUS IDEATION [None]
  - CONFUSIONAL STATE [None]
  - ABNORMAL BEHAVIOUR [None]
  - AGGRESSION [None]
  - AGITATION [None]
  - DISSOCIATIVE FUGUE [None]
  - DELIRIUM [None]
